FAERS Safety Report 10248816 (Version 1)
Quarter: 2014Q2

REPORT INFORMATION
  Report Type: Report from Study
  Country: DE (occurrence: DE)
  Receive Date: 20140620
  Receipt Date: 20140620
  Transmission Date: 20141212
  Serious: Yes (Death, Other)
  Sender: FDA-Public Use
  Company Number: DE-ROCHE-1418504

PATIENT
  Sex: 0

DRUGS (4)
  1. PEG-INTERFERON ALFA 2A [Suspect]
     Indication: CHRONIC HEPATITIS C
     Route: 065
  2. RIBAVIRIN [Suspect]
     Indication: CHRONIC HEPATITIS C
     Route: 065
  3. BOCEPREVIR [Suspect]
     Indication: CHRONIC HEPATITIS C
     Route: 065
  4. TELAPREVIR [Suspect]
     Indication: CHRONIC HEPATITIS C
     Route: 065

REACTIONS (25)
  - Sepsis [Fatal]
  - Neutropenic sepsis [Recovered/Resolved]
  - Hepatic failure [Recovered/Resolved]
  - Anaemia [Unknown]
  - Neutropenia [Unknown]
  - Thrombocytopenia [Unknown]
  - Rash [Unknown]
  - Peripheral nerve paresis [Recovered/Resolved]
  - Urinary incontinence [Not Recovered/Not Resolved]
  - Balanoposthitis [Recovered/Resolved]
  - Epididymitis [Recovered/Resolved]
  - Abscess sweat gland [Recovered/Resolved]
  - Ileus [Recovered/Resolved]
  - Angina unstable [Recovered/Resolved]
  - Diabetes mellitus [Unknown]
  - Influenza like illness [Unknown]
  - Gastrointestinal disorder [Unknown]
  - Fatigue [Unknown]
  - Anorectal discomfort [Unknown]
  - Insomnia [Unknown]
  - Bronchopulmonary disease [Unknown]
  - Dysgeusia [Unknown]
  - Autoimmune thyroiditis [Unknown]
  - Proctitis haemorrhagic [Unknown]
  - Mental disorder [Unknown]
